FAERS Safety Report 5832659-6 (Version None)
Quarter: 2008Q3

REPORT INFORMATION
  Report Type: 
  Country: None (occurrence: None)
  Receive Date: 20080804
  Receipt Date: 20080728
  Transmission Date: 20090109
  Serious: Yes (Other)
  Sender: FDA-Public Use
  Company Number: PHHY2008DE16359

PATIENT
  Sex: Female

DRUGS (1)
  1. CO-DIOVAN FORTE [Suspect]
     Dosage: 160/25 MG
     Dates: start: 20080601

REACTIONS (2)
  - ARRHYTHMIA [None]
  - CHEST PAIN [None]
